FAERS Safety Report 6342411-3 (Version None)
Quarter: 2009Q3

REPORT INFORMATION
  Report Type: 
  Country: None (occurrence: None)
  Receive Date: 20090908
  Receipt Date: 20090828
  Transmission Date: 20100115
  Serious: Yes (Other)
  Sender: FDA-Public Use
  Company Number: US-ELI_LILLY_AND_COMPANY-US200908006536

PATIENT
  Sex: Female
  Weight: 72.562 kg

DRUGS (8)
  1. BYETTA [Suspect]
     Indication: TYPE 2 DIABETES MELLITUS
     Dosage: 5 UG, 2/D
     Route: 058
     Dates: start: 20070801, end: 20070901
  2. BYETTA [Suspect]
     Dosage: 10 UG, 2/D
     Route: 058
     Dates: start: 20070901, end: 20080901
  3. BYETTA [Suspect]
     Dosage: 10 UG, DAILY (1/D)
     Route: 058
     Dates: start: 20080901
  4. BYETTA [Suspect]
     Dosage: 5 UG, 2/D
     Route: 058
  5. BYETTA [Suspect]
     Dosage: 5 UG, 3/D
     Route: 058
  6. ACTOS [Concomitant]
     Dates: end: 20090601
  7. LANTUS [Concomitant]
     Dates: end: 20090601
  8. VITAMINS NOS [Concomitant]

REACTIONS (7)
  - BLOOD GLUCOSE DECREASED [None]
  - BLOOD GLUCOSE INCREASED [None]
  - FATIGUE [None]
  - HYPOGLYCAEMIC UNCONSCIOUSNESS [None]
  - OFF LABEL USE [None]
  - TREMOR [None]
  - WEIGHT DECREASED [None]
